FAERS Safety Report 18610863 (Version 1)
Quarter: 2020Q4

REPORT INFORMATION
  Report Type: Spontaneous
  Country: US (occurrence: US)
  Receive Date: 20201211
  Receipt Date: 20201211
  Transmission Date: 20210114
  Serious: Yes (Death, Hospitalization)
  Sender: FDA-Public Use
  Company Number: None

PATIENT
  Age: 75 Year
  Sex: Male

DRUGS (1)
  1. REVLIMID [Suspect]
     Active Substance: LENALIDOMIDE
     Indication: PLASMA CELL MYELOMA
     Dosage: 25MG QD X 21 DAYS/28 D; ORAL?
     Route: 048
     Dates: start: 20200120

REACTIONS (8)
  - Pneumonia [None]
  - White blood cell count decreased [None]
  - Sepsis [None]
  - Bradycardia [None]
  - Atelectasis [None]
  - Neutropenia [None]
  - Hypoxia [None]
  - Blood pressure abnormal [None]

NARRATIVE: CASE EVENT DATE: 20200319
